FAERS Safety Report 11314278 (Version 1)
Quarter: 2015Q3

REPORT INFORMATION
  Report Type: Spontaneous
  Country: RO (occurrence: RO)
  Receive Date: 20150727
  Receipt Date: 20150727
  Transmission Date: 20151125
  Serious: Yes (Death, Other)
  Sender: FDA-Public Use
  Company Number: RO-CELGENE-ROU-2015035320

PATIENT
  Age: 77 Year
  Sex: Male

DRUGS (14)
  1. CONCOR [Concomitant]
     Active Substance: BISOPROLOL FUMARATE
     Indication: ANTIDEPRESSANT THERAPY
     Route: 048
  2. MILURIT [Concomitant]
     Active Substance: ALLOPURINOL
     Indication: HYPERURICAEMIA
     Route: 048
  3. LAGOSA [Concomitant]
     Indication: LIVER DISORDER
     Dosage: ALTERNATING WITH ESSENTIALE FORTE
     Route: 065
  4. FOLIC ACID. [Concomitant]
     Active Substance: FOLIC ACID
     Indication: PRODUCT USED FOR UNKNOWN INDICATION
     Route: 048
  5. SERETIDE [Concomitant]
     Active Substance: FLUTICASONE FUROATE\SALMETEROL XINAFOATE
     Indication: BRONCHOSPASM
     Dosage: 50/500
     Route: 048
  6. FUROSEMID [Concomitant]
     Active Substance: FUROSEMIDE
     Indication: CARDIAC FAILURE
     Dosage: 1 CAPSULE
     Route: 048
  7. AZACITIDINE. [Suspect]
     Active Substance: AZACITIDINE
     Indication: ACUTE MYELOID LEUKAEMIA
     Dosage: 135 MILLIGRAM
     Route: 041
     Dates: start: 20140528
  8. ESSENTIALE FORTE [Concomitant]
     Indication: LIVER DISORDER
     Dosage: ALTERNATING WITH LAGOSA
     Route: 065
  9. ZARXIO [Concomitant]
     Active Substance: FILGRASTIM-SNDZ
     Indication: COLONY STIMULATING FACTOR THERAPY
     Dosage: FL
     Route: 048
  10. FLUCONAZOL [Concomitant]
     Active Substance: FLUCONAZOLE
     Indication: INFECTION PROPHYLAXIS
     Route: 048
  11. ACYCLOVIR. [Concomitant]
     Active Substance: ACYCLOVIR
     Indication: INFECTION PROPHYLAXIS
     Route: 048
  12. ATACAND [Concomitant]
     Active Substance: CANDESARTAN CILEXETIL
     Indication: ANTIDEPRESSANT THERAPY
     Route: 048
  13. SUMETROLIM [Concomitant]
     Indication: INFECTION PROPHYLAXIS
     Route: 048
  14. NORVASC [Concomitant]
     Active Substance: AMLODIPINE BESYLATE
     Indication: HYPERTENSION
     Dosage: 400 MILLIGRAM
     Route: 048

REACTIONS (3)
  - Acute myeloid leukaemia [Not Recovered/Not Resolved]
  - Respiratory failure [Fatal]
  - No therapeutic response [Not Recovered/Not Resolved]

NARRATIVE: CASE EVENT DATE: 201503
